FAERS Safety Report 8595837-1 (Version None)
Quarter: 2012Q3

REPORT INFORMATION
  Report Type: 
  Country: None (occurrence: None)
  Receive Date: 20120815
  Receipt Date: 20120806
  Transmission Date: 20120928
  Serious: Yes (Hospitalization)
  Sender: FDA-Public Use
  Company Number: DE-EISAI INC-E7389-02827-SOL-DE

PATIENT
  Age: 60 Year
  Sex: Female

DRUGS (6)
  1. FENTANYL [Concomitant]
     Indication: PAIN
  2. LYRICA [Concomitant]
  3. ZOMETA [Concomitant]
     Dates: start: 20101101
  4. FASLODEX [Concomitant]
     Dates: start: 20101101
  5. NOVALGIN [Concomitant]
     Indication: PAIN
  6. HALAVEN [Suspect]
     Route: 041
     Dates: start: 20111019, end: 20120621

REACTIONS (1)
  - PULMONARY EMBOLISM [None]
